FAERS Safety Report 4407626-X (Version None)
Quarter: 2004Q3

REPORT INFORMATION
  Report Type: 
  Country: None (occurrence: None)
  Receive Date: 20040721
  Receipt Date: 20040705
  Transmission Date: 20050211
  Serious: Yes (Death, Life-Threatening, Disabling, Other)
  Sender: FDA-Public Use
  Company Number: JP_040603588

PATIENT
  Age: 65 Year
  Sex: Male
  Weight: 65 kg

DRUGS (9)
  1. VANCOMYCIN [Suspect]
     Indication: PNEUMONIA STAPHYLOCOCCAL
     Dosage: 500 MG/2 DAY
     Dates: start: 20031222, end: 20040214
  2. TARGOCID [Concomitant]
  3. FAMOTIDINE [Concomitant]
  4. DORMICUM (MIDAZOLAM) [Concomitant]
  5. VECURONIUM BROMIDE [Concomitant]
  6. REMINARON (GABEXATE MESILATE) [Concomitant]
  7. FLUMARIN (FLOMOXEF SODIUM) [Concomitant]
  8. MORPHINE HYDROCHLORIDE [Concomitant]
  9. SULPERAZON [Concomitant]

REACTIONS (4)
  - DISSEMINATED INTRAVASCULAR COAGULATION [None]
  - HEPATIC FUNCTION ABNORMAL [None]
  - PSEUDOMONAL SEPSIS [None]
  - RENAL FAILURE ACUTE [None]
